FAERS Safety Report 19582900 (Version 1)
Quarter: 2021Q3

REPORT INFORMATION
  Report Type: Spontaneous
  Country: US (occurrence: US)
  Receive Date: 20210719
  Receipt Date: 20210719
  Transmission Date: 20211014
  Serious: Yes (Hospitalization)
  Sender: FDA-Public Use
  Company Number: None

PATIENT
  Age: 87 Year
  Sex: Female

DRUGS (8)
  1. MONTELUKAST [Concomitant]
     Active Substance: MONTELUKAST SODIUM
  2. GABAPENTIN. [Concomitant]
     Active Substance: GABAPENTIN
  3. PRAVASTATIN. [Concomitant]
     Active Substance: PRAVASTATIN
  4. NONTRIPTYLIN [Concomitant]
  5. SILDENAFIL 20 MG [Suspect]
     Active Substance: SILDENAFIL
     Indication: ESSENTIAL HYPERTENSION
     Route: 048
     Dates: start: 20180118
  6. DILTIAZEM. [Concomitant]
     Active Substance: DILTIAZEM
  7. DASVENLAFAX [Concomitant]
  8. OMEPRAZOLE. [Concomitant]
     Active Substance: OMEPRAZOLE

REACTIONS (30)
  - Anaemia [None]
  - Acute lymphocytic leukaemia (in remission) [None]
  - Chronic obstructive pulmonary disease [None]
  - Blood osmolarity decreased [None]
  - Anxiety [None]
  - Cough [None]
  - Upper respiratory tract infection [None]
  - Gastrooesophageal reflux disease [None]
  - Fall [None]
  - Depressed mood [None]
  - Thyroid disorder [None]
  - Hyperparathyroidism [None]
  - Malignant melanoma [None]
  - Pruritus [None]
  - Hyperthyroidism [None]
  - Hepatic cirrhosis [None]
  - Sinus node dysfunction [None]
  - Tumour lysis syndrome [None]
  - Asthma [None]
  - Insomnia [None]
  - Atrial fibrillation [None]
  - Vitamin D deficiency [None]
  - Cardiac disorder [None]
  - Dyspnoea [None]
  - Cardiac failure [None]
  - Rhinitis [None]
  - Major depression [None]
  - Aortic valve stenosis [None]
  - Amino acid metabolism disorder [None]
  - Non-Hodgkin^s lymphoma [None]

NARRATIVE: CASE EVENT DATE: 20210701
